FAERS Safety Report 8109980 (Version 6)
Quarter: 2013Q3

REPORT INFORMATION
  Report Type: Spontaneous
  Country: US (occurrence: US)
  Receive Date: 20110829
  Receipt Date: 20130701
  Transmission Date: 20140515
  Serious: No
  Sender: FDA-Public Use
  Company Number: US-BIOGENIDEC-2011BI031674

PATIENT
  Age: 54 Year
  Sex: Male

DRUGS (3)
  1. TYSABRI [Suspect]
     Indication: MULTIPLE SCLEROSIS
     Route: 042
     Dates: start: 20041223
  2. TYSABRI [Suspect]
     Indication: MULTIPLE SCLEROSIS
     Route: 042
     Dates: start: 20110609, end: 20110804
  3. AVONEX [Concomitant]
     Indication: MULTIPLE SCLEROSIS
     Route: 030

REACTIONS (5)
  - Feeling hot [Unknown]
  - Adverse drug reaction [Recovered/Resolved]
  - Back pain [Unknown]
  - Hypersensitivity [Not Recovered/Not Resolved]
  - Drug specific antibody present [Unknown]
